FAERS Safety Report 7752385-6 (Version None)
Quarter: 2011Q3

REPORT INFORMATION
  Report Type: 
  Country: None (occurrence: None)
  Receive Date: 20110915
  Receipt Date: 20110908
  Transmission Date: 20111222
  Serious: Yes (Hospitalization)
  Sender: FDA-Public Use
  Company Number: PHHO2010DE04618

PATIENT
  Sex: Male
  Weight: 44 kg

DRUGS (3)
  1. EVEROLIMUS [Suspect]
     Indication: LIVER TRANSPLANT
     Dosage: 3 MG, BID
     Route: 048
     Dates: start: 20100122
  2. TACROLIMUS [Suspect]
     Indication: LIVER TRANSPLANT
     Dosage: 4.5 MG, BID
     Route: 048
     Dates: start: 20091217
  3. CORTICOSTEROIDS [Concomitant]

REACTIONS (2)
  - CLOSTRIDIUM COLITIS [None]
  - DIARRHOEA [None]
